FAERS Safety Report 4300448-X (Version None)
Quarter: 2004Q1

REPORT INFORMATION
  Report Type: 
  Country: None (occurrence: None)
  Receive Date: 20040217
  Receipt Date: 20040204
  Transmission Date: 20041129
  Serious: Yes (Hospitalization)
  Sender: FDA-Public Use
  Company Number: 04P-056-0249599-00

PATIENT
  Age: 59 Year
  Sex: Female

DRUGS (5)
  1. DEPAKENE [Suspect]
     Indication: GRAND MAL CONVULSION
     Dosage: PER ORAL
     Route: 048
     Dates: start: 20031205, end: 20031216
  2. PHENOBARBITAL TAB [Suspect]
     Indication: GRAND MAL CONVULSION
     Dosage: PER ORAL
     Route: 048
     Dates: start: 20031123, end: 20031205
  3. CLAVULIN [Suspect]
     Indication: PYREXIA
     Dosage: PER ORAL
     Route: 048
     Dates: start: 20031206, end: 20031208
  4. CLONAZEPAM [Concomitant]
  5. FOSPHENYTOIN [Concomitant]

REACTIONS (7)
  - ACINETOBACTER INFECTION [None]
  - DERMATITIS EXFOLIATIVE [None]
  - DRUG ERUPTION [None]
  - GENERALISED OEDEMA [None]
  - HYPEREOSINOPHILIC SYNDROME [None]
  - SKIN DESQUAMATION [None]
  - URINARY TRACT INFECTION [None]
